FAERS Safety Report 5903152-7 (Version None)
Quarter: 2008Q3

REPORT INFORMATION
  Report Type: 
  Country: None (occurrence: None)
  Receive Date: 20080929
  Receipt Date: 20080929
  Transmission Date: 20090109
  Serious: Yes (Other)
  Sender: FDA-Public Use
  Company Number: None

PATIENT
  Age: 48 Year
  Sex: Female
  Weight: 68.9467 kg

DRUGS (1)
  1. CYMBALTA [Suspect]
     Indication: DEPRESSION
     Dosage: 30 MG. DAILY PO
     Route: 048
     Dates: start: 20070301, end: 20080610

REACTIONS (5)
  - DIZZINESS [None]
  - LETHARGY [None]
  - NAUSEA [None]
  - NIGHT SWEATS [None]
  - SOMNOLENCE [None]
